FAERS Safety Report 4972818-8 (Version None)
Quarter: 2006Q2

REPORT INFORMATION
  Report Type: 
  Country: None (occurrence: None)
  Receive Date: 20060414
  Receipt Date: 20060404
  Transmission Date: 20061013
  Serious: Yes (Hospitalization)
  Sender: FDA-Public Use
  Company Number: FR-JNJFOC-20060402327

PATIENT
  Sex: Male

DRUGS (6)
  1. IXPRIM [Suspect]
     Indication: PAIN
     Route: 048
  2. COTAREG [Concomitant]
     Route: 048
  3. COTAREG [Concomitant]
     Route: 048
  4. PARIET [Concomitant]
     Route: 048
  5. PRAXILENE [Concomitant]
     Route: 048
  6. PLAVIX [Concomitant]
     Route: 048

REACTIONS (1)
  - SUICIDE ATTEMPT [None]
